FAERS Safety Report 5417768-8 (Version None)
Quarter: 2007Q3

REPORT INFORMATION
  Report Type: 
  Country: None (occurrence: None)
  Receive Date: 20070815
  Receipt Date: 20070815
  Transmission Date: 20080115
  Serious: Yes (Hospitalization)
  Sender: FDA-Public Use
  Company Number: None

PATIENT
  Sex: Female
  Weight: 66.6788 kg

DRUGS (14)
  1. TOPOTECAN [Suspect]
     Indication: SMALL CELL LUNG CANCER STAGE UNSPECIFIED
     Dosage: IV   (THERAPY DATES: PRIOR TO ADMISSION)
     Route: 042
  2. NEUPOGEN [Concomitant]
  3. COUMADIN [Concomitant]
  4. LACTULOSE [Concomitant]
  5. TOPROL-XL [Concomitant]
  6. NYSTATIN [Concomitant]
  7. SLO-MAG [Concomitant]
  8. LASIX [Concomitant]
  9. PROTONIX [Concomitant]
  10. XOPENEX [Concomitant]
  11. ADVAIR DISKUS 100/50 [Concomitant]
  12. DEXAMETHASONE 0.5MG TAB [Concomitant]
  13. SYSTANE EYE DROPS [Concomitant]
  14. ZOFRAN [Concomitant]

REACTIONS (2)
  - PANCYTOPENIA [None]
  - PYREXIA [None]
